FAERS Safety Report 8549905-0 (Version None)
Quarter: 2012Q3

REPORT INFORMATION
  Report Type: 
  Country: None (occurrence: None)
  Receive Date: 20120730
  Receipt Date: 20120419
  Transmission Date: 20120928
  Serious: No
  Sender: FDA-Public Use
  Company Number: US-GLAXOSMITHKLINE-A0975001A

PATIENT
  Age: 57 Year
  Sex: Female
  Weight: 72.7 kg

DRUGS (4)
  1. NAPROXEN (ALEVE) [Suspect]
     Indication: HEADACHE
     Dosage: 220MG FOUR TIMES PER DAY
     Route: 048
     Dates: start: 20120101
  2. IMITREX [Suspect]
     Indication: HEADACHE
     Dosage: 100MG AS REQUIRED
     Route: 048
     Dates: start: 20120101
  3. GEODON [Suspect]
     Indication: BIPOLAR DISORDER
     Dosage: 60MGD PER DAY
  4. UNSPECIFIED MEDICATION [Suspect]

REACTIONS (3)
  - DRUG INEFFECTIVE [None]
  - HEADACHE [None]
  - BLOOD CALCIUM INCREASED [None]
